FAERS Safety Report 15054308 (Version 1)
Quarter: 2018Q2

REPORT INFORMATION
  Report Type: Other
  Country: SE (occurrence: SE)
  Receive Date: 20180622
  Receipt Date: 20180622
  Transmission Date: 20180711
  Serious: Yes (Hospitalization)
  Sender: FDA-Public Use
  Company Number: SE-GE HEALTHCARE LIFE SCIENCES-2018CSU002439

PATIENT

DRUGS (2)
  1. OMNIPAQUE [Suspect]
     Active Substance: IOHEXOL
     Indication: PRODUCT USED FOR UNKNOWN INDICATION
     Dosage: 20 ML (300 MGI/ML MIXED WITH 1.5 LITERS OF WATER), SINGLE
     Route: 048
  2. OMNIPAQUE [Suspect]
     Active Substance: IOHEXOL
     Indication: PRODUCT USED FOR UNKNOWN INDICATION
     Dosage: 109 ML, SINGLE
     Route: 042

REACTIONS (4)
  - Dyspnoea [Unknown]
  - Swollen tongue [Unknown]
  - Presyncope [Unknown]
  - Erythema [Unknown]

NARRATIVE: CASE EVENT DATE: 20180423
